FAERS Safety Report 7568389-2 (Version None)
Quarter: 2011Q2

REPORT INFORMATION
  Report Type: 
  Country: None (occurrence: None)
  Receive Date: 20110623
  Receipt Date: 20110615
  Transmission Date: 20111010
  Serious: Yes (Other)
  Sender: FDA-Public Use
  Company Number: B0727044A

PATIENT
  Sex: Female

DRUGS (1)
  1. ZANTAC [Suspect]
     Route: 048
     Dates: start: 20010101, end: 20110615

REACTIONS (1)
  - PARKINSONISM [None]
